FAERS Safety Report 7583266 (Version 2)
Quarter: 2013Q1

REPORT INFORMATION
  Report Type: Spontaneous
  Country: US (occurrence: US)
  Receive Date: 20100914
  Receipt Date: 20130211
  Transmission Date: 20140127
  Serious: Yes (Other)
  Sender: FDA-Public Use
  Company Number: US-RB-015016-10

PATIENT
  Age: 29 None
  Sex: Female

DRUGS (4)
  1. SUBOXONE [Suspect]
     Indication: DRUG DEPENDENCE
     Route: 060
     Dates: start: 2007, end: 2009
  2. SUBOXONE [Suspect]
     Route: 060
     Dates: start: 20100417
  3. SUBUTEX [Suspect]
     Indication: DRUG DEPENDENCE
     Route: 060
     Dates: start: 2009, end: 20100416
  4. TOBACCO LEAF [Suspect]
     Indication: PRODUCT USED FOR UNKNOWN INDICATION
     Dosage: REPORTER STATES PATIENT SMOKES CIGARETTES, NO FURTHER INFORMATION PROVIDED

REACTIONS (3)
  - Exposure during pregnancy [Recovered/Resolved]
  - Premature separation of placenta [Recovered/Resolved]
  - Premature delivery [Recovered/Resolved]
